FAERS Safety Report 23092196 (Version 3)
Quarter: 2024Q2

REPORT INFORMATION
  Report Type: Spontaneous
  Country: BR (occurrence: BR)
  Receive Date: 20231021
  Receipt Date: 20240628
  Transmission Date: 20240715
  Serious: No
  Sender: FDA-Public Use
  Company Number: BR-ROCHE-3436189

PATIENT
  Age: 70 Year
  Sex: Female
  Weight: 56.0 kg

DRUGS (1)
  1. ALECENSA [Suspect]
     Active Substance: ALECTINIB HYDROCHLORIDE
     Indication: Lung neoplasm malignant
     Route: 065
     Dates: start: 2020

REACTIONS (1)
  - Liver disorder [Unknown]
